FAERS Safety Report 6333616-6 (Version None)
Quarter: 2009Q3

REPORT INFORMATION
  Report Type: 
  Country: None (occurrence: None)
  Receive Date: 20090829
  Receipt Date: 20090518
  Transmission Date: 20100115
  Serious: No
  Sender: FDA-Public Use
  Company Number: US-ABBOTT-09P-163-0574083-00

PATIENT
  Sex: Male
  Weight: 99.88 kg

DRUGS (3)
  1. SIMCOR [Suspect]
     Indication: BLOOD CHOLESTEROL INCREASED
     Dosage: AT BEDTIME
     Route: 048
     Dates: start: 20080101, end: 20090515
  2. ULTRAM ER [Concomitant]
     Indication: ARTHRITIS
  3. DICLOFENAC [Concomitant]
     Indication: ARTHRITIS

REACTIONS (4)
  - CATARACT [None]
  - PRURITUS [None]
  - URTICARIA [None]
  - VISUAL IMPAIRMENT [None]
